FAERS Safety Report 5242402-X (Version None)
Quarter: 2007Q1

REPORT INFORMATION
  Report Type: 
  Country: None (occurrence: None)
  Receive Date: 20070221
  Receipt Date: 20070206
  Transmission Date: 20070707
  Serious: Yes (Hospitalization)
  Sender: FDA-Public Use
  Company Number: US-BRISTOL-MYERS SQUIBB COMPANY-13671516

PATIENT
  Age: 62 Year
  Sex: Male

DRUGS (10)
  1. ATENOLOL [Suspect]
  2. IRBESARTAN [Suspect]
  3. FUROSEMIDE [Suspect]
  4. CLONIDINE [Suspect]
  5. VERAPAMIL [Concomitant]
  6. TERAZOSIN HCL [Concomitant]
  7. METOLAZONE [Concomitant]
  8. INSULIN [Concomitant]
  9. NAPROXEN [Concomitant]
  10. POTASSIUM CHLORIDE [Concomitant]

REACTIONS (11)
  - ANGINA PECTORIS [None]
  - ASTHENIA [None]
  - BLOOD CREATININE INCREASED [None]
  - HYPERHIDROSIS [None]
  - HYPERKALAEMIA [None]
  - OEDEMA [None]
  - ORTHOPNOEA [None]
  - SINUS BRADYCARDIA [None]
  - SYNCOPE [None]
  - URINE OUTPUT DECREASED [None]
  - WEIGHT INCREASED [None]
